FAERS Safety Report 17724438 (Version 1)
Quarter: 2020Q2

REPORT INFORMATION
  Report Type: Spontaneous
  Country: TR (occurrence: TR)
  Receive Date: 20200429
  Receipt Date: 20200429
  Transmission Date: 20200714
  Serious: Yes (Other)
  Sender: FDA-Public Use
  Company Number: TR-ALLERGAN-2017323US

PATIENT
  Sex: Female
  Weight: 48 kg

DRUGS (4)
  1. VORTIOXETINE-FORM-UNKNOWN [Suspect]
     Active Substance: VORTIOXETINE
     Dosage: 10 MG, QD
     Route: 065
  2. ESCITALOPRAM OXALATE - BP [Suspect]
     Active Substance: ESCITALOPRAM OXALATE
     Indication: MAJOR DEPRESSION
     Dosage: 10 MG, QD
     Route: 065
  3. VORTIOXETINE-FORM-UNKNOWN [Suspect]
     Active Substance: VORTIOXETINE
     Dosage: 5 MG, QD
     Route: 065
  4. VORTIOXETINE-FORM-UNKNOWN [Suspect]
     Active Substance: VORTIOXETINE
     Indication: MAJOR DEPRESSION
     Dosage: 20 MG, QD
     Route: 065

REACTIONS (4)
  - Therapeutic product effect incomplete [Unknown]
  - Ecchymosis [Recovered/Resolved]
  - Pruritus [Recovered/Resolved]
  - Petechiae [Recovered/Resolved]
